FAERS Safety Report 15960232 (Version 1)
Quarter: 2019Q1

REPORT INFORMATION
  Report Type: Spontaneous
  Country: US (occurrence: US)
  Receive Date: 20190214
  Receipt Date: 20190214
  Transmission Date: 20190417
  Serious: No
  Sender: FDA-Public Use
  Company Number: US-ROCHE-2198858

PATIENT
  Age: 90 Year
  Sex: Male

DRUGS (1)
  1. ERIVEDGE [Suspect]
     Active Substance: VISMODEGIB
     Indication: UNEVALUABLE EVENT
     Dosage: ONGOING: UNKNOWN
     Route: 048

REACTIONS (3)
  - Fatigue [Unknown]
  - Hypersomnia [Unknown]
  - Malaise [Unknown]
